FAERS Safety Report 13184272 (Version 1)
Quarter: 2017Q1

REPORT INFORMATION
  Report Type: Spontaneous
  Country: US (occurrence: US)
  Receive Date: 20170202
  Receipt Date: 20170202
  Transmission Date: 20170509
  Serious: No
  Sender: FDA-Public Use
  Company Number: None

PATIENT
  Age: 27 Year
  Sex: Male
  Weight: 81.5 kg

DRUGS (2)
  1. GADOBENATE [Suspect]
     Active Substance: GADOBENATE DIMEGLUMINE
     Indication: INNER EAR DISORDER
     Dates: start: 20161123, end: 20161123
  2. GADOBENATE [Suspect]
     Active Substance: GADOBENATE DIMEGLUMINE
     Indication: NUCLEAR MAGNETIC RESONANCE IMAGING
     Dates: start: 20161123, end: 20161123

REACTIONS (6)
  - Eye pruritus [None]
  - Throat irritation [None]
  - Lacrimation increased [None]
  - Cough [None]
  - Oral pruritus [None]
  - Contrast media reaction [None]

NARRATIVE: CASE EVENT DATE: 20161123
